FAERS Safety Report 4554490-4 (Version None)
Quarter: 2005Q1

REPORT INFORMATION
  Report Type: 
  Country: None (occurrence: None)
  Receive Date: 20050114
  Receipt Date: 20040726
  Transmission Date: 20050727
  Serious: Yes (Other)
  Sender: FDA-Public Use
  Company Number: GXKR2004ES00565

PATIENT
  Age: 61 Year
  Sex: Female

DRUGS (3)
  1. RANITIDINE [Suspect]
  2. NON-STEROIDAL ANTI-INFLAMMATORY MEDICATION (NON-STEROIDAL ANTI-INFLAMM [Concomitant]
  3. PROPOXYPHENE HCL [Concomitant]

REACTIONS (3)
  - NEPHROTIC SYNDROME [None]
  - PYELONEPHRITIS [None]
  - RENAL FAILURE ACUTE [None]
